FAERS Safety Report 8850778 (Version 1)
Quarter: 2012Q4

REPORT INFORMATION
  Report Type: 
  Country: US (occurrence: US)
  Receive Date: 20121019
  Receipt Date: 20121019
  Transmission Date: 20130627
  Serious: No
  Sender: FDA-Public Use
  Company Number: US-BAYER-2012-106707

PATIENT
  Sex: Female

DRUGS (15)
  1. BETASERON [Suspect]
     Dosage: 0.25 mg, UNK
     Route: 058
  2. CYMBALTA [Concomitant]
     Dosage: 20 mg
  3. KLONOPIN [Concomitant]
     Dosage: 0.5 mg
  4. XANAX [Concomitant]
     Dosage: 0.25 mg
  5. LIPITOR [Concomitant]
     Dosage: 10 mg
  6. NEURONTIN [Concomitant]
     Dosage: 100 mg
  7. BACLOFEN [Concomitant]
     Dosage: 10 mg
  8. WELLBUTRIN XL [Concomitant]
     Dosage: 150 mg
  9. NEXIUM [Concomitant]
     Dosage: 20 mg
  10. ADDERALL [Concomitant]
     Dosage: 10 mg
  11. CALCIUM [Concomitant]
     Dosage: 500
  12. ADDERALL XR [Concomitant]
     Dosage: 10 mg
  13. MULTIVITAMIN [Concomitant]
  14. TYLENOL [PARACETAMOL] [Concomitant]
     Dosage: 325 mg
  15. ASPIRIN (E.C.) [ACETYLSALICYLIC ACID] [Concomitant]
     Dosage: 81 mg

REACTIONS (1)
  - Influenza like illness [None]
